FAERS Safety Report 6729849-7 (Version None)
Quarter: 2010Q2

REPORT INFORMATION
  Report Type: 
  Country: None (occurrence: None)
  Receive Date: 20100513
  Receipt Date: 20100428
  Transmission Date: 20101027
  Serious: Yes (Other)
  Sender: FDA-Public Use
  Company Number: AUR-APL-2010-01212

PATIENT
  Age: 70 Year
  Sex: Male
  Weight: 102 kg

DRUGS (6)
  1. SIMVASTATIN [Suspect]
     Indication: HYPERCHOLESTEROLAEMIA
     Dosage: 40 MG - ORAL
     Route: 048
     Dates: start: 20090528, end: 20100121
  2. ATORVASTATIN CALCIUM [Suspect]
     Indication: HYPERCHOLESTEROLAEMIA
     Dosage: 20MG - ORAL
     Route: 048
     Dates: start: 20100128, end: 20100310
  3. ASPIRIN [Concomitant]
  4. BISOPROLOL FUMARATE [Concomitant]
  5. CLOPIDOGREL [Concomitant]
  6. RAMIPRIL [Concomitant]

REACTIONS (1)
  - RECTAL HAEMORRHAGE [None]
